FAERS Safety Report 7225199 (Version 5)
Quarter: 2018Q2

REPORT INFORMATION
  Report Type: Spontaneous
  Country: US (occurrence: US)
  Receive Date: 20091221
  Receipt Date: 20180501
  Transmission Date: 20180711
  Serious: Yes (Other)
  Sender: FDA-Public Use
  Company Number: US-ASTRAZENECA-2009SE09600

PATIENT
  Age: 64 Year
  Sex: Female
  Weight: 79.4 kg

DRUGS (18)
  1. BRILINTA [Suspect]
     Active Substance: TICAGRELOR
     Indication: STENT PLACEMENT
     Route: 048
     Dates: start: 20180418
  2. CLARITINE [Concomitant]
     Active Substance: LORATADINE
  3. VITAMIN D [Concomitant]
     Active Substance: CHOLECALCIFEROL
     Indication: SUPPLEMENTATION THERAPY
     Route: 048
  4. CRESTOR [Suspect]
     Active Substance: ROSUVASTATIN CALCIUM
     Indication: BLOOD CHOLESTEROL ABNORMAL
     Route: 048
     Dates: start: 2005
  5. METOPROLOL TARTRATE. [Suspect]
     Active Substance: METOPROLOL TARTRATE
     Indication: BLOOD PRESSURE MEASUREMENT
     Route: 048
  6. GLIMEPIRIDE. [Concomitant]
     Active Substance: GLIMEPIRIDE
     Indication: DIABETES MELLITUS
     Route: 048
     Dates: end: 2017
  7. GLIMEPIRIDE. [Concomitant]
     Active Substance: GLIMEPIRIDE
     Indication: DIABETES MELLITUS
     Route: 048
     Dates: start: 2017
  8. LISINOPRIL. [Concomitant]
     Active Substance: LISINOPRIL
  9. BABY ASPIRIN [Concomitant]
     Active Substance: ASPIRIN
     Indication: CARDIAC DISORDER
     Dates: start: 2007
  10. VITAMIN B12 [Concomitant]
     Active Substance: CYANOCOBALAMIN
     Indication: SUPPLEMENTATION THERAPY
     Dosage: DAILY
  11. LOPRESSOR [Concomitant]
     Active Substance: METOPROLOL TARTRATE
  12. METFORMIN [Concomitant]
     Active Substance: METFORMIN HYDROCHLORIDE
     Indication: DIABETES MELLITUS
     Route: 048
  13. JANUVIA [Concomitant]
     Active Substance: SITAGLIPTIN PHOSPHATE
     Indication: DIABETES MELLITUS
     Route: 048
     Dates: start: 2016
  14. LOVAZA [Suspect]
     Active Substance: OMEGA-3-ACID ETHYL ESTERS
     Indication: BLOOD TRIGLYCERIDES INCREASED
     Route: 048
  15. AMLODIPINE [Concomitant]
     Active Substance: AMLODIPINE BESYLATE
     Indication: PALPITATIONS
     Dates: start: 2010
  16. FLUTICASONE. [Concomitant]
     Active Substance: FLUTICASONE
  17. HYDROCHLOROTHIAZIDE. [Concomitant]
     Active Substance: HYDROCHLOROTHIAZIDE
  18. VITAMIN C [Concomitant]
     Active Substance: ASCORBIC ACID
     Indication: PROPHYLAXIS

REACTIONS (26)
  - Lymphoma [Unknown]
  - Tonsillitis [Unknown]
  - Mobility decreased [Unknown]
  - Headache [Unknown]
  - Blood glucose increased [Not Recovered/Not Resolved]
  - Coronary artery occlusion [Unknown]
  - Blood cholesterol increased [Unknown]
  - Insomnia [Unknown]
  - Cholelithiasis [Unknown]
  - Infection [Unknown]
  - Blood pressure abnormal [Unknown]
  - Myalgia [Unknown]
  - Influenza like illness [Unknown]
  - Blood cholesterol decreased [Unknown]
  - Muscle spasms [Unknown]
  - Myalgia [Unknown]
  - Drug hypersensitivity [Unknown]
  - Myocardial infarction [Unknown]
  - Weight decreased [Unknown]
  - Night sweats [Unknown]
  - Nail discolouration [Unknown]
  - Gastric disorder [Unknown]
  - Palpitations [Unknown]
  - Nausea [Unknown]
  - Hypophagia [Unknown]
  - Madarosis [Unknown]

NARRATIVE: CASE EVENT DATE: 2005
